FAERS Safety Report 10368220 (Version 1)
Quarter: 2014Q3

REPORT INFORMATION
  Report Type: Spontaneous
  Country: DK (occurrence: DK)
  Receive Date: 20140807
  Receipt Date: 20140807
  Transmission Date: 20150326
  Serious: Yes (Other)
  Sender: FDA-Public Use
  Company Number: DK-ACTAVIS-2014-17434

PATIENT
  Age: 74 Year
  Sex: Male

DRUGS (4)
  1. SIMVASTATIN ACTAVIS [Concomitant]
     Active Substance: SIMVASTATIN
     Indication: CARDIOVASCULAR DISORDER
     Dosage: 40 MG, UNKNOWN
     Route: 048
     Dates: start: 20111221, end: 20130514
  2. QUETIAPIN ACTAVIS [Suspect]
     Active Substance: QUETIAPINE
     Indication: INSOMNIA
     Dosage: UNK
     Route: 048
     Dates: end: 20140125
  3. AMLODIPIN SANDOZ                   /00972402/ [Concomitant]
     Indication: HYPERTENSION
     Dosage: 5 MG, UNKNOWN
     Route: 065
  4. SEROQUEL [Suspect]
     Active Substance: QUETIAPINE FUMARATE
     Indication: INSOMNIA
     Dosage: 25 MG, UNKNOWN. 25 MG TO 50 MG AND THEN BACK.
     Route: 065
     Dates: start: 20120725, end: 20140125

REACTIONS (4)
  - Fall [Unknown]
  - Muscle atrophy [Unknown]
  - Polyneuropathy [Unknown]
  - Myalgia [Unknown]

NARRATIVE: CASE EVENT DATE: 2013
